FAERS Safety Report 8121836-X (Version None)
Quarter: 2012Q1

REPORT INFORMATION
  Report Type: 
  Country: None (occurrence: None)
  Receive Date: 20120208
  Receipt Date: 20120201
  Transmission Date: 20120608
  Serious: Yes (Hospitalization)
  Sender: FDA-Public Use
  Company Number: TR-PFIZER INC-2012028988

PATIENT
  Age: 69 Year
  Sex: Male

DRUGS (2)
  1. BORTEZOMIB [Suspect]
     Indication: MULTIPLE MYELOMA
     Dosage: 1.3 MG/M2, DAYS 1, 4, 8 AND 11
  2. DEXAMETHASONE SODIUM PHOSPHATE [Suspect]
     Indication: MULTIPLE MYELOMA

REACTIONS (1)
  - HYPONATRAEMIA [None]
